FAERS Safety Report 18645055 (Version 1)
Quarter: 2020Q4

REPORT INFORMATION
  Report Type: Other
  Country: US (occurrence: US)
  Receive Date: 20201221
  Receipt Date: 20201221
  Transmission Date: 20210114
  Serious: Yes (Other)
  Sender: FDA-Public Use
  Company Number: US-ROCHE-2733180

PATIENT
  Sex: Female

DRUGS (1)
  1. OCREVUS [Suspect]
     Active Substance: OCRELIZUMAB
     Indication: MULTIPLE SCLEROSIS
     Dosage: DATE OF TREATMENT: 22/APR/2019, 09/SEP/2019, 25/OCT/2019, 01/JUN/2020
     Route: 065
     Dates: start: 20190405

REACTIONS (3)
  - Urinary tract infection [Recovered/Resolved]
  - Off label use [Unknown]
  - Intentional product use issue [Unknown]
